FAERS Safety Report 11821331 (Version 1)
Quarter: 2015Q4

REPORT INFORMATION
  Report Type: Spontaneous
  Country: US (occurrence: US)
  Receive Date: 20151210
  Receipt Date: 20151210
  Transmission Date: 20160305
  Serious: No
  Sender: FDA-Public Use
  Company Number: US-JNJFOC-20150816860

PATIENT
  Sex: Female

DRUGS (3)
  1. PATANASE [Concomitant]
     Active Substance: OLOPATADINE HYDROCHLORIDE
  2. IMBRUVICA [Suspect]
     Active Substance: IBRUTINIB
     Indication: LYMPHOMA
     Route: 048
     Dates: start: 20140906
  3. PROAIR(SALBUTAMOL SULFATE) [Concomitant]

REACTIONS (2)
  - Feeling hot [Unknown]
  - Off label use [Unknown]
